FAERS Safety Report 8115690-X (Version None)
Quarter: 2012Q1

REPORT INFORMATION
  Report Type: 
  Country: None (occurrence: None)
  Receive Date: 20120206
  Receipt Date: 20120130
  Transmission Date: 20120608
  Serious: No
  Sender: FDA-Public Use
  Company Number: US-B.I. PHARMACEUTICALS,INC./RIDGEFIELD-2012-BP-01822BP

PATIENT
  Age: 57 Year
  Sex: Female

DRUGS (8)
  1. LOSARTAN POTASSIUM [Concomitant]
     Indication: GOUT
     Dosage: 25 MG
     Route: 048
  2. FUROSEMIDE [Concomitant]
     Indication: OEDEMA
     Dosage: 20 MG
     Route: 048
  3. ASPIRIN [Concomitant]
     Indication: PROPHYLAXIS
     Dosage: 325 MG
     Route: 048
  4. ALBUTEROL [Concomitant]
     Indication: EMPHYSEMA
     Route: 055
  5. ALDACTONE [Concomitant]
     Indication: HYPERTENSION
     Dosage: 25 MG
     Route: 048
  6. CARVEDILOL [Concomitant]
     Indication: HYPERTENSION
     Dosage: 12.5 MG
     Route: 048
  7. SPIRIVA [Suspect]
     Indication: EMPHYSEMA
     Dosage: 18 MCG
     Route: 055
     Dates: start: 20110601
  8. PLAVIX [Concomitant]
     Indication: DEEP VEIN THROMBOSIS
     Dosage: 75 MG
     Route: 048

REACTIONS (2)
  - DIZZINESS [None]
  - OVERDOSE [None]
